FAERS Safety Report 16413493 (Version 1)
Quarter: 2019Q2

REPORT INFORMATION
  Report Type: Spontaneous
  Country: US (occurrence: US)
  Receive Date: 20190611
  Receipt Date: 20190611
  Transmission Date: 20190711
  Serious: No
  Sender: FDA-Public Use
  Company Number: US-LUPIN PHARMACEUTICALS INC.-2019-01802

PATIENT
  Age: 1 Year
  Sex: Male
  Weight: 11.34 kg

DRUGS (1)
  1. OSELTAMIVIR PHOSPHATE FOR ORAL SUSPENSION, 6 MG/ML [Suspect]
     Active Substance: OSELTAMIVIR PHOSPHATE
     Indication: INFLUENZA
     Dosage: 5 MILLILITER, BID
     Route: 048
     Dates: start: 20190312, end: 20190312

REACTIONS (1)
  - Vomiting [Recovered/Resolved]

NARRATIVE: CASE EVENT DATE: 20190312
